FAERS Safety Report 6372187-5 (Version None)
Quarter: 2009Q3

REPORT INFORMATION
  Report Type: 
  Country: None (occurrence: None)
  Receive Date: 20090924
  Receipt Date: 20090916
  Transmission Date: 20100115
  Serious: Yes (Other)
  Sender: FDA-Public Use
  Company Number: US-JNJCH-2009025072

PATIENT
  Age: 35 Year
  Sex: Male
  Weight: 113.4 kg

DRUGS (1)
  1. BENADRYL [Suspect]
     Indication: HYPERSENSITIVITY
     Dosage: TEXT:1 TABLET IN MORNING AND 2 TAB EVERY 4 HR
     Route: 048

REACTIONS (4)
  - DYSPNOEA [None]
  - OFF LABEL USE [None]
  - THROAT TIGHTNESS [None]
  - URTICARIA [None]
